FAERS Safety Report 7859553-3 (Version None)
Quarter: 2011Q4

REPORT INFORMATION
  Report Type: 
  Country: None (occurrence: None)
  Receive Date: 20111027
  Receipt Date: 20111021
  Transmission Date: 20120403
  Serious: Yes (Hospitalization, Other)
  Sender: FDA-Public Use
  Company Number: TW-ABBOTT-11P-153-0847618-00

PATIENT
  Sex: Male
  Weight: 60 kg

DRUGS (2)
  1. HUMIRA [Suspect]
     Route: 058
     Dates: start: 20110615, end: 20110713
  2. HUMIRA [Suspect]
     Indication: ANKYLOSING SPONDYLITIS
     Route: 058
     Dates: start: 20101105, end: 20110615

REACTIONS (20)
  - LIVER TRANSPLANT [None]
  - DYSURIA [None]
  - GASTROINTESTINAL HAEMORRHAGE [None]
  - CHOLELITHIASIS [None]
  - CHRONIC HEPATIC FAILURE [None]
  - FATIGUE [None]
  - HEPATITIS FULMINANT [None]
  - BACK PAIN [None]
  - ABDOMINAL DISTENSION [None]
  - HEPATIC ENZYME INCREASED [None]
  - ACUTE HEPATIC FAILURE [None]
  - PROTHROMBIN TIME PROLONGED [None]
  - HEPATITIS B [None]
  - MELAENA [None]
  - JAUNDICE [None]
  - CHOLANGITIS [None]
  - URINE COLOUR ABNORMAL [None]
  - SALMONELLA BACTERAEMIA [None]
  - PYREXIA [None]
  - YELLOW SKIN [None]
